FAERS Safety Report 16736621 (Version 1)
Quarter: 2019Q3

REPORT INFORMATION
  Report Type: Report from Study
  Country: US (occurrence: US)
  Receive Date: 20190823
  Receipt Date: 20190823
  Transmission Date: 20191005
  Serious: Yes (Death, Other)
  Sender: FDA-Public Use
  Company Number: US-ROCHE-2384169

PATIENT
  Sex: Female

DRUGS (4)
  1. OCREVUS [Suspect]
     Active Substance: OCRELIZUMAB
     Dosage: SECOND SPLIT DOSE
     Route: 065
     Dates: start: 20170612
  2. BACLOFEN. [Concomitant]
     Active Substance: BACLOFEN
  3. OCREVUS [Suspect]
     Active Substance: OCRELIZUMAB
     Dosage: MOST RECENT INFUSION
     Route: 065
     Dates: start: 20190517
  4. OCREVUS [Suspect]
     Active Substance: OCRELIZUMAB
     Indication: SECONDARY PROGRESSIVE MULTIPLE SCLEROSIS
     Dosage: FIRST SPLIT DOSE
     Route: 065
     Dates: start: 20170529

REACTIONS (3)
  - Septic shock [Unknown]
  - Pneumonia aspiration [Unknown]
  - Death [Fatal]
